FAERS Safety Report 7719336-1 (Version None)
Quarter: 2011Q3

REPORT INFORMATION
  Report Type: 
  Country: None (occurrence: None)
  Receive Date: 20110830
  Receipt Date: 20110824
  Transmission Date: 20111222
  Serious: Yes (Hospitalization)
  Sender: FDA-Public Use
  Company Number: US-GILEAD-2011-0043292

PATIENT
  Age: 65 Year
  Sex: Female

DRUGS (3)
  1. REVATIO [Concomitant]
  2. LETAIRIS [Suspect]
     Indication: PRODUCT USED FOR UNKNOWN INDICATION
     Route: 048
     Dates: start: 20090224
  3. PROCRIT                            /00909301/ [Concomitant]

REACTIONS (1)
  - DYSPEPSIA [None]
